FAERS Safety Report 25333571 (Version 1)
Quarter: 2025Q2

REPORT INFORMATION
  Report Type: Spontaneous
  Country: SN (occurrence: SN)
  Receive Date: 20250520
  Receipt Date: 20250520
  Transmission Date: 20250716
  Serious: Yes (Death, Other)
  Sender: NOVARTIS
  Company Number: SN-002147023-NVSC2025SN079665

PATIENT
  Sex: Female

DRUGS (1)
  1. GLIVEC [Suspect]
     Active Substance: IMATINIB MESYLATE
     Indication: Chronic myeloid leukaemia
     Route: 065

REACTIONS (3)
  - Chronic myeloid leukaemia [Fatal]
  - Malignant neoplasm progression [Fatal]
  - Maternal exposure timing unspecified [Unknown]
